FAERS Safety Report 10437141 (Version 1)
Quarter: 2014Q3

REPORT INFORMATION
  Report Type: Spontaneous
  Country: US (occurrence: US)
  Receive Date: 20140908
  Receipt Date: 20140908
  Transmission Date: 20150326
  Serious: No
  Sender: FDA-Public Use
  Company Number: US-BRISTOL-MYERS SQUIBB COMPANY-20332581

PATIENT
  Age: 50 Year
  Sex: Female
  Weight: 81.63 kg

DRUGS (4)
  1. PROZAC [Concomitant]
     Active Substance: FLUOXETINE HYDROCHLORIDE
  2. ABILIFY [Suspect]
     Active Substance: ARIPIPRAZOLE
     Dosage: LOT#3^E OR B^77909A
     Dates: start: 201402
  3. XANAX [Concomitant]
     Active Substance: ALPRAZOLAM
  4. AMBIEN [Concomitant]
     Active Substance: ZOLPIDEM TARTRATE
     Dosage: LOW DOSE

REACTIONS (1)
  - Crying [Unknown]
